FAERS Safety Report 5269353-9 (Version None)
Quarter: 2007Q1

REPORT INFORMATION
  Report Type: 
  Country: None (occurrence: None)
  Receive Date: 20070319
  Receipt Date: 20070308
  Transmission Date: 20070707
  Serious: Yes (Other)
  Sender: FDA-Public Use
  Company Number: US-PFIZER INC-2007018660

PATIENT
  Age: 38 Year
  Sex: Male

DRUGS (1)
  1. CHANTIX [Suspect]
     Dates: start: 20070201, end: 20070201

REACTIONS (3)
  - CHORIORETINOPATHY [None]
  - DIZZINESS [None]
  - VISION BLURRED [None]
